FAERS Safety Report 4564569-9 (Version None)
Quarter: 2005Q1

REPORT INFORMATION
  Report Type: 
  Country: None (occurrence: None)
  Receive Date: 20050126
  Receipt Date: 20050113
  Transmission Date: 20050727
  Serious: Yes (Hospitalization)
  Sender: FDA-Public Use
  Company Number: HQWYE707019JAN05

PATIENT
  Age: 50 Year
  Sex: Male

DRUGS (7)
  1. RAPAMUNE (SIROLIMUS, TABLET) LOT NO. : 26349 [Suspect]
     Indication: PROPHYLAXIS AGAINST TRANSPLANT REJECTION
     Dosage: 5 MG 1X PER 1 DAY ORAL
     Route: 048
     Dates: start: 20040929
  2. CYCLOSPORINE [Suspect]
     Indication: PROPHYLAXIS AGAINST TRANSPLANT REJECTION
  3. PREDNISONE [Suspect]
     Indication: PROPHYLAXIS AGAINST TRANSPLANT REJECTION
  4. BACTRIM [Concomitant]
  5. RANITIDINE [Concomitant]
  6. PROPRANOLOL [Concomitant]
  7. INSULIN [Concomitant]

REACTIONS (5)
  - BLOOD CREATININE INCREASED [None]
  - HYPERGLYCAEMIA [None]
  - POLYDIPSIA [None]
  - POLYURIA [None]
  - WEIGHT DECREASED [None]
